FAERS Safety Report 23426585 (Version 1)
Quarter: 2024Q1

REPORT INFORMATION
  Report Type: Spontaneous
  Country: GB (occurrence: GB)
  Receive Date: 20240122
  Receipt Date: 20240122
  Transmission Date: 20240409
  Serious: Yes (Other)
  Sender: FDA-Public Use
  Company Number: None

PATIENT
  Age: 66 Year
  Weight: 88 kg

DRUGS (6)
  1. PREDNISOLONE [Suspect]
     Active Substance: PREDNISOLONE
     Indication: Chronic obstructive pulmonary disease
     Dosage: FIVE TO BE TAKEN EACH DAY
     Route: 065
  2. LEVOTHYROXINE [Concomitant]
     Active Substance: LEVOTHYROXINE\LEVOTHYROXINE SODIUM
     Dosage: MORNING
     Dates: start: 20231204
  3. CIPROFLOXACIN [Concomitant]
     Active Substance: CIPROFLOXACIN
     Indication: Chronic obstructive pulmonary disease
     Dates: start: 20240110
  4. BEVESPI AEROSPHERE [Concomitant]
     Active Substance: FORMOTEROL FUMARATE\GLYCOPYRROLATE
     Indication: Chronic obstructive pulmonary disease
     Dosage: INHALED
     Route: 055
     Dates: start: 20231108
  5. ALBUTEROL [Concomitant]
     Active Substance: ALBUTEROL
     Dosage: INHALED WHEN REQUIRED
     Route: 055
     Dates: start: 20231108, end: 20231207
  6. MIRTAZAPINE [Concomitant]
     Active Substance: MIRTAZAPINE
     Dosage: AT NIGHT
     Dates: start: 20231106

REACTIONS (5)
  - Hypersensitivity [Recovered/Resolved]
  - Rash vesicular [Unknown]
  - Swelling face [Unknown]
  - Pharyngeal swelling [Unknown]
  - Rash [Unknown]
